FAERS Safety Report 25844470 (Version 1)
Quarter: 2025Q3

REPORT INFORMATION
  Report Type: Spontaneous
  Country: CN (occurrence: CN)
  Receive Date: 20250925
  Receipt Date: 20250925
  Transmission Date: 20251020
  Serious: Yes (Hospitalization)
  Sender: NUVATION BIO
  Company Number: CN-NUVATION BIO INC.-2025NUV000210

PATIENT
  Age: 41 Year
  Sex: Female
  Weight: 52 kg

DRUGS (1)
  1. TALETRECTINIB ADIPATE [Suspect]
     Active Substance: TALETRECTINIB ADIPATE
     Indication: Lung neoplasm malignant
     Dosage: 600 MILLIGRAM, QD
     Dates: start: 20250828, end: 20250908

REACTIONS (2)
  - Drug eruption [Recovering/Resolving]
  - Pyrexia [Recovered/Resolved]

NARRATIVE: CASE EVENT DATE: 20250907
